FAERS Safety Report 4775849-6 (Version None)
Quarter: 2005Q3

REPORT INFORMATION
  Report Type: 
  Country: None (occurrence: None)
  Receive Date: 20050922
  Receipt Date: 20050114
  Transmission Date: 20060218
  Serious: Yes (Other)
  Sender: FDA-Public Use
  Company Number: HU-MERCK-0501USA02738

PATIENT
  Age: 9 Year
  Sex: Female

DRUGS (1)
  1. ELSPAR [Suspect]
     Indication: ACUTE LYMPHOCYTIC LEUKAEMIA
     Route: 042

REACTIONS (16)
  - ANTITHROMBIN III DECREASED [None]
  - APHASIA [None]
  - BONE MARROW DEPRESSION [None]
  - BRAIN DAMAGE [None]
  - CENTRAL NERVOUS SYSTEM INFLAMMATION [None]
  - CENTRAL NERVOUS SYSTEM LESION [None]
  - CEREBRAL ATROPHY [None]
  - CEREBRAL VENOUS THROMBOSIS [None]
  - CONVULSION [None]
  - HEADACHE [None]
  - HEMIANOPIA HOMONYMOUS [None]
  - HEMIPARESIS [None]
  - HYPOCOAGULABLE STATE [None]
  - LOSS OF CONSCIOUSNESS [None]
  - SIMPLE PARTIAL SEIZURES [None]
  - THROMBOSIS [None]
